FAERS Safety Report 19987748 (Version 1)
Quarter: 2021Q4

REPORT INFORMATION
  Report Type: Spontaneous
  Country: CA (occurrence: CA)
  Receive Date: 20211022
  Receipt Date: 20211022
  Transmission Date: 20220304
  Serious: Yes (Other)
  Sender: FDA-Public Use
  Company Number: CA-LUPIN PHARMACEUTICALS INC.-2021-20242

PATIENT
  Age: 29 Year
  Sex: Male

DRUGS (6)
  1. METHYLPHENIDATE [Suspect]
     Active Substance: METHYLPHENIDATE
     Indication: Behavioural therapy
     Dosage: 5 MILLIGRAM, BID
     Route: 065
  2. AMANTADINE. [Concomitant]
     Active Substance: AMANTADINE HYDROCHLORIDE
     Indication: Behavioural therapy
     Dosage: 100 MILLIGRAM, BID
     Route: 065
  3. BACLOFEN [Concomitant]
     Active Substance: BACLOFEN
     Indication: Muscle spasticity
     Dosage: 15 MILLIGRAM, TID
     Route: 065
  4. LEVETIRACETAM [Concomitant]
     Active Substance: LEVETIRACETAM
     Indication: Seizure prophylaxis
     Dosage: 1500 MILLIGRAM, BID
     Route: 065
  5. LACOSAMIDE [Concomitant]
     Active Substance: LACOSAMIDE
     Indication: Seizure prophylaxis
     Dosage: 25 MILLIGRAM, BID
     Route: 065
  6. DANTROLENE. [Concomitant]
     Active Substance: DANTROLENE SODIUM
     Indication: Muscle spasticity
     Dosage: 100 MILLIGRAM, TID
     Route: 065

REACTIONS (3)
  - Autonomic nervous system imbalance [Recovered/Resolved]
  - Musculoskeletal stiffness [Recovered/Resolved]
  - Tachycardia [Recovered/Resolved]
